FAERS Safety Report 10094420 (Version 1)
Quarter: 2014Q2

REPORT INFORMATION
  Report Type: Spontaneous
  Country: US (occurrence: US)
  Receive Date: 20140422
  Receipt Date: 20140422
  Transmission Date: 20141212
  Serious: No
  Sender: FDA-Public Use
  Company Number: US-JNJFOC-20140318162

PATIENT
  Age: 29 Year
  Sex: Female

DRUGS (6)
  1. INVEGA [Suspect]
     Indication: PSYCHOTIC DISORDER
     Route: 048
  2. NICOTINE PATCH [Concomitant]
     Route: 065
  3. SINEQUAN [Concomitant]
     Route: 065
  4. STRATTERA [Concomitant]
     Route: 065
  5. HYDROXYZINE [Concomitant]
     Route: 065
  6. LEXAPRO [Concomitant]
     Route: 065

REACTIONS (2)
  - Galactorrhoea [Not Recovered/Not Resolved]
  - Blood prolactin increased [Unknown]
